FAERS Safety Report 9122030 (Version 2)
Quarter: 2013Q1

REPORT INFORMATION
  Report Type: Spontaneous
  Country: DK (occurrence: DK)
  Receive Date: 20130227
  Receipt Date: 20130307
  Transmission Date: 20140127
  Serious: Yes (Hospitalization, Other)
  Sender: FDA-Public Use
  Company Number: PHHY2013DK017873

PATIENT
  Age: 58 Year
  Sex: Male

DRUGS (1)
  1. NILOTINIB [Suspect]
     Indication: CHRONIC MYELOID LEUKAEMIA
     Dosage: 400 MG, BID
     Route: 048
     Dates: start: 200804

REACTIONS (13)
  - Renal artery stenosis [Unknown]
  - Renal impairment [Unknown]
  - Facial paresis [Unknown]
  - Benign prostatic hyperplasia [Unknown]
  - Dysarthria [Unknown]
  - Bladder disorder [Unknown]
  - Hemianopia [Unknown]
  - Renovascular hypertension [Unknown]
  - Hypertension [Unknown]
  - Visual impairment [Unknown]
  - Tinnitus [Unknown]
  - Dizziness [Unknown]
  - Headache [Unknown]
